FAERS Safety Report 9233768 (Version 1)
Quarter: 2013Q1

REPORT INFORMATION
  Report Type: Spontaneous
  Country: US (occurrence: None)
  Receive Date: 20121031
  Receipt Date: 20121031
  Transmission Date: 20140127
  Serious: No
  Sender: FDA-Public Use
  Company Number: PHEH2012US015089

PATIENT
  Sex: Female

DRUGS (1)
  1. GILENYA (FTY) CAPSULE, 0.5MG [Suspect]
     Indication: MULTIPLE SCLEROSIS
     Dosage: 0.5MG, QD, ORAL
     Route: 048
     Dates: start: 20111230

REACTIONS (18)
  - General physical health deterioration [None]
  - Drug intolerance [None]
  - Inappropriate schedule of drug administration [None]
  - Monocyte count decreased [None]
  - Blood urea increased [None]
  - Granulocyte count decreased [None]
  - Lethargy [None]
  - Low density lipoprotein increased [None]
  - Blood cholesterol increased [None]
  - Blood glucose increased [None]
  - Liver function test abnormal [None]
  - Leukopenia [None]
  - Lymphocyte count decreased [None]
  - Asthenia [None]
  - Alanine aminotransferase increased [None]
  - Aspartate aminotransferase increased [None]
  - Blood alkaline phosphatase increased [None]
  - Gamma-glutamyltransferase increased [None]
